FAERS Safety Report 17259695 (Version 1)
Quarter: 2019Q4

REPORT INFORMATION
  Report Type: Spontaneous
  Country: US (occurrence: US)
  Receive Date: 20191218
  Receipt Date: 20191218
  Transmission Date: 20200122
  Serious: Yes (Death)
  Sender: FDA-Public Use
  Company Number: None

PATIENT
  Age: 60 Year
  Sex: Male

DRUGS (2)
  1. TACROLIMUS 0 .5MG CAPSULES [Suspect]
     Active Substance: TACROLIMUS
     Indication: RENAL TRANSPLANT
     Dosage: 2 CAPSULES IN THE AM, 1 IN THE PM
     Route: 048
     Dates: start: 20181205
  2. MYCOPHENOLATE 500MG TAB [Suspect]
     Active Substance: MYCOPHENOLIC ACID
     Indication: RENAL TRANSPLANT
     Dosage: ?          OTHER DOSE:2 CAPSULES IN THE ;?
     Route: 048
     Dates: start: 20181205

REACTIONS (1)
  - Death [None]

NARRATIVE: CASE EVENT DATE: 20191218
